FAERS Safety Report 7995897-2 (Version None)
Quarter: 2011Q4

REPORT INFORMATION
  Report Type: 
  Country: None (occurrence: None)
  Receive Date: 20111220
  Receipt Date: 20111215
  Transmission Date: 20120403
  Serious: Yes (Other)
  Sender: FDA-Public Use
  Company Number: US-ROCHE-794813

PATIENT
  Sex: Female
  Weight: 72.64 kg

DRUGS (1)
  1. ACCUTANE [Suspect]
     Indication: ACNE CYSTIC
     Route: 048
     Dates: start: 20020301, end: 20020901

REACTIONS (17)
  - FATIGUE [None]
  - HYPERSENSITIVITY [None]
  - CHAPPED LIPS [None]
  - NAUSEA [None]
  - BACK PAIN [None]
  - DECREASED APPETITE [None]
  - DRY SKIN [None]
  - INFLAMMATORY BOWEL DISEASE [None]
  - IRRITABLE BOWEL SYNDROME [None]
  - PHARYNGITIS [None]
  - SINUSITIS [None]
  - HEADACHE [None]
  - MYALGIA [None]
  - ABDOMINAL PAIN [None]
  - DRY EYE [None]
  - COLITIS ULCERATIVE [None]
  - DIARRHOEA [None]
